FAERS Safety Report 23775267 (Version 1)
Quarter: 2024Q2

REPORT INFORMATION
  Report Type: Spontaneous
  Country: NL (occurrence: NL)
  Receive Date: 20240423
  Receipt Date: 20240423
  Transmission Date: 20240715
  Serious: Yes (Hospitalization)
  Sender: FDA-Public Use
  Company Number: None

PATIENT
  Age: 59 Year
  Sex: Male
  Weight: 75.6 kg

DRUGS (1)
  1. CAPECITABINE [Suspect]
     Active Substance: CAPECITABINE
     Indication: Acinic cell carcinoma of salivary gland
     Dosage: 2 TABLETS OF 500MG TWICE A DAY??CAPECITABINE TABLET FO 500MG / BRAND NAME NOT SPECIFIED
     Route: 065
     Dates: start: 20240320, end: 20240325

REACTIONS (1)
  - Arteriospasm coronary [Not Recovered/Not Resolved]
